FAERS Safety Report 7573896-2 (Version None)
Quarter: 2011Q2

REPORT INFORMATION
  Report Type: 
  Country: None (occurrence: None)
  Receive Date: 20110627
  Receipt Date: 20110620
  Transmission Date: 20111010
  Serious: Yes (Hospitalization, Disabling)
  Sender: FDA-Public Use
  Company Number: B0711982A

PATIENT
  Sex: Male
  Weight: 32 kg

DRUGS (14)
  1. ATARAX [Concomitant]
     Dosage: 25MG PER DAY
     Dates: start: 20020529, end: 20020606
  2. FLUMARIN [Concomitant]
     Dosage: 2G PER DAY
     Route: 042
     Dates: start: 20020528, end: 20020603
  3. ALKERAN [Suspect]
     Indication: STEM CELL TRANSPLANT
     Dosage: 63MGM2 PER DAY
     Route: 042
     Dates: start: 20020522, end: 20020523
  4. THIOTEPA [Suspect]
     Indication: STEM CELL TRANSPLANT
     Dosage: 200MGM2 PER DAY
     Dates: start: 20020522, end: 20020523
  5. DIFLUCAN [Concomitant]
     Dosage: 100MG PER DAY
     Route: 042
     Dates: start: 20020528, end: 20020614
  6. NEO-MINOPHAGEN-C [Concomitant]
     Dosage: 40ML PER DAY
     Route: 042
     Dates: start: 20020529, end: 20020603
  7. KYTRIL [Concomitant]
     Dosage: 6MG PER DAY
     Route: 042
     Dates: end: 20020531
  8. FAMOTIDINE [Concomitant]
     Dosage: 20MG PER DAY
     Route: 042
     Dates: start: 20020528, end: 20020614
  9. ALKERAN [Suspect]
     Dosage: 63MGM2 PER DAY
     Route: 042
     Dates: start: 20020529, end: 20020530
  10. THIOTEPA [Suspect]
     Dosage: 200MGM2 PER DAY
     Dates: start: 20020529, end: 20020530
  11. PHYSIO 35 [Concomitant]
     Dosage: 2000ML PER DAY
     Route: 042
     Dates: start: 20020525, end: 20020605
  12. ZOVIRAX [Concomitant]
     Dosage: 150MG PER DAY
     Route: 042
     Dates: start: 20020527, end: 20020618
  13. DIAMOX SRC [Concomitant]
     Dosage: 500MG PER DAY
     Dates: start: 20020525, end: 20020614
  14. MIRACLID [Concomitant]
     Dosage: 150IU3 PER DAY
     Route: 042
     Dates: start: 20020528, end: 20020606

REACTIONS (4)
  - MUCOSAL INFLAMMATION [None]
  - VOMITING [None]
  - PYREXIA [None]
  - HYPOGEUSIA [None]
